FAERS Safety Report 14410675 (Version 2)
Quarter: 2019Q2

REPORT INFORMATION
  Report Type: Spontaneous
  Country: US (occurrence: US)
  Receive Date: 20180119
  Receipt Date: 20190611
  Transmission Date: 20190711
  Serious: Yes (Other)
  Sender: FDA-Public Use
  Company Number: PHEH2018US000721

PATIENT
  Sex: Female

DRUGS (2)
  1. KISQALI FEMARA CO-PACK [Suspect]
     Active Substance: LETROZOLE\RIBOCICLIB
     Indication: BREAST CANCER METASTATIC
     Dosage: 600 MG, QD
     Route: 048
     Dates: start: 20171201, end: 20180104
  2. KISQALI FEMARA CO-PACK [Suspect]
     Active Substance: LETROZOLE\RIBOCICLIB
     Indication: BREAST CANCER METASTATIC
     Dosage: 600 MG, QD
     Route: 048
     Dates: start: 20171201, end: 20180104

REACTIONS (5)
  - Pain [Recovering/Resolving]
  - Accidental overdose [Unknown]
  - Pancytopenia [Recovering/Resolving]
  - Electrocardiogram QT prolonged [Recovering/Resolving]
  - Oedema [Recovering/Resolving]

NARRATIVE: CASE EVENT DATE: 20171201
